FAERS Safety Report 18255572 (Version 1)
Quarter: 2020Q3

REPORT INFORMATION
  Report Type: Spontaneous
  Country: AU (occurrence: AU)
  Receive Date: 20200910
  Receipt Date: 20200910
  Transmission Date: 20201103
  Serious: Yes (Other)
  Sender: FDA-Public Use
  Company Number: AU-009507513-2009AUS003007

PATIENT
  Sex: Female

DRUGS (1)
  1. AVANZA [Suspect]
     Active Substance: MIRTAZAPINE
     Dosage: UNK

REACTIONS (2)
  - Malaise [Unknown]
  - Drug hypersensitivity [Unknown]
